FAERS Safety Report 4810298-3 (Version None)
Quarter: 2005Q4

REPORT INFORMATION
  Report Type: 
  Country: None (occurrence: None)
  Receive Date: 20051026
  Receipt Date: 20050805
  Transmission Date: 20060501
  Serious: Yes (Life-Threatening, Hospitalization)
  Sender: FDA-Public Use
  Company Number: DE-SANOFI-SYNTHELABO-A04200500672

PATIENT
  Sex: Female
  Weight: 70 kg

DRUGS (8)
  1. ELOXATIN [Suspect]
     Indication: COLON CANCER
     Route: 041
     Dates: start: 20050503, end: 20050503
  2. FLUOROURACIL [Concomitant]
     Indication: COLON CANCER
     Route: 042
     Dates: start: 20050503, end: 20050504
  3. LEUCOVORIN CALCIUM [Concomitant]
     Indication: COLON CANCER
     Route: 041
     Dates: start: 20050503, end: 20050504
  4. KEVATRIL [Concomitant]
     Indication: PROPHYLAXIS OF NAUSEA AND VOMITING
     Route: 041
     Dates: start: 20050503, end: 20050504
  5. FORTECORTIN [Concomitant]
     Indication: PROPHYLAXIS
     Route: 042
     Dates: start: 20050503, end: 20050503
  6. BELOC ZOK MITE [Concomitant]
     Indication: HYPERTENSION
     Route: 048
  7. CAPTOPRIL [Concomitant]
     Indication: HYPERTENSION
     Route: 048
  8. SORTIS 20 [Concomitant]
     Indication: HYPERLIPIDAEMIA
     Route: 048

REACTIONS (2)
  - DEEP VEIN THROMBOSIS [None]
  - PULMONARY EMBOLISM [None]
